FAERS Safety Report 6582065-4 (Version None)
Quarter: 2010Q1

REPORT INFORMATION
  Report Type: 
  Country: None (occurrence: None)
  Receive Date: 20100215
  Receipt Date: 20100211
  Transmission Date: 20100710
  Serious: Yes (Other)
  Sender: FDA-Public Use
  Company Number: US-BRISTOL-MYERS SQUIBB COMPANY-14973754

PATIENT
  Sex: Female

DRUGS (1)
  1. COUMADIN [Suspect]
     Dates: start: 20060201, end: 20081002

REACTIONS (1)
  - NEOPLASM MALIGNANT [None]
